FAERS Safety Report 25702787 (Version 1)
Quarter: 2025Q3

REPORT INFORMATION
  Report Type: Spontaneous
  Country: US (occurrence: US)
  Receive Date: 20250819
  Receipt Date: 20250819
  Transmission Date: 20251021
  Serious: No
  Sender: REGENERON
  Company Number: US-REGENERON PHARMACEUTICALS, INC.-2025-118595

PATIENT
  Sex: Female

DRUGS (1)
  1. PRALUENT [Suspect]
     Active Substance: ALIROCUMAB
     Indication: Product used for unknown indication
     Dosage: 150 MG, Q2W (EVERY TWO WEEKS)
     Route: 058
     Dates: start: 20250604, end: 20250702

REACTIONS (6)
  - Back disorder [Unknown]
  - Muscular weakness [Unknown]
  - Burning sensation [Unknown]
  - Hypoaesthesia [Unknown]
  - Pain in extremity [Unknown]
  - Neuralgia [Recovering/Resolving]

NARRATIVE: CASE EVENT DATE: 20250101
